FAERS Safety Report 21227825 (Version 1)
Quarter: 2022Q3

REPORT INFORMATION
  Report Type: Spontaneous
  Country: US (occurrence: None)
  Receive Date: 20220817
  Receipt Date: 20220817
  Transmission Date: 20221027
  Serious: No
  Sender: FDA-Public Use
  Company Number: None

PATIENT
  Age: 68 Year
  Sex: Male

DRUGS (2)
  1. YERVOY [Suspect]
     Active Substance: IPILIMUMAB
     Indication: Product used for unknown indication
     Dosage: OTHER QUANTITY : UNSURE;?OTHER FREQUENCY : OTHER;?
     Route: 042
     Dates: end: 202208
  2. OPDIVO [Concomitant]
     Active Substance: NIVOLUMAB

REACTIONS (2)
  - Chest pain [None]
  - Loss of therapeutic response [None]

NARRATIVE: CASE EVENT DATE: 20220801
